FAERS Safety Report 10309160 (Version 1)
Quarter: 2014Q3

REPORT INFORMATION
  Report Type: Spontaneous
  Country: JP (occurrence: JP)
  Receive Date: 20140716
  Receipt Date: 20140716
  Transmission Date: 20150326
  Serious: Yes (Other)
  Sender: FDA-Public Use
  Company Number: PHHY2014JP085438

PATIENT
  Age: 60 Year
  Sex: Male

DRUGS (2)
  1. AFINITOR [Suspect]
     Active Substance: EVEROLIMUS
     Indication: NEUROENDOCRINE TUMOUR
     Dosage: 10 MG, DAILY
     Route: 048
     Dates: start: 201212
  2. AFINITOR [Suspect]
     Active Substance: EVEROLIMUS
     Dosage: 10 MG, PER TIME DAILY TO 4 DAYS OF ADMINISTRATION AND 3 DAYS OF WITHDRAWAL

REACTIONS (10)
  - Metastases to bone [Recovering/Resolving]
  - Horner^s syndrome [Unknown]
  - Mucosal inflammation [Recovered/Resolved]
  - Diplopia [Unknown]
  - Metastases to lymph nodes [Recovering/Resolving]
  - Lymphadenopathy [Unknown]
  - VIth nerve paralysis [Recovering/Resolving]
  - VIIth nerve paralysis [Recovering/Resolving]
  - Hypoglossal nerve paralysis [Recovering/Resolving]
  - Hepatic function abnormal [Unknown]

NARRATIVE: CASE EVENT DATE: 201311
